FAERS Safety Report 10073373 (Version 3)
Quarter: 2014Q2

REPORT INFORMATION
  Report Type: Spontaneous
  Country: GB (occurrence: GB)
  Receive Date: 20140411
  Receipt Date: 20140603
  Transmission Date: 20141212
  Serious: Yes (Hospitalization)
  Sender: FDA-Public Use
  Company Number: PHFR2014GB002143

PATIENT
  Sex: Male

DRUGS (4)
  1. CLOZARIL [Suspect]
     Indication: SCHIZOPHRENIA
     Dosage: UNK
     Route: 048
     Dates: start: 20011127
  2. CLOZARIL [Suspect]
     Dosage: 200 MG, BID
     Route: 048
  3. LITHIUM CARBONATE [Concomitant]
     Dosage: 800 MG, NOCTE
     Route: 048
  4. LAMOTRIGINE [Concomitant]
     Dosage: 200 MG, BID
     Route: 048

REACTIONS (7)
  - Malaise [Unknown]
  - Flatulence [Unknown]
  - Vertigo [Recovered/Resolved]
  - Nausea [Recovered/Resolved]
  - Abdominal discomfort [Recovered/Resolved]
  - Gastroenteritis [Recovering/Resolving]
  - Renal impairment [Recovering/Resolving]
